FAERS Safety Report 10227452 (Version 1)
Quarter: 2014Q2

REPORT INFORMATION
  Report Type: Report from Study
  Country: DE (occurrence: DE)
  Receive Date: 20140610
  Receipt Date: 20140610
  Transmission Date: 20141212
  Serious: Yes (Hospitalization)
  Sender: FDA-Public Use
  Company Number: DE-UCBSA-2014000358

PATIENT
  Sex: 0

DRUGS (1)
  1. ROTIGOTINE [Suspect]
     Dosage: UNK

REACTIONS (1)
  - Dermatitis allergic [Unknown]
